FAERS Safety Report 9782180 (Version 1)
Quarter: 2013Q4

REPORT INFORMATION
  Report Type: Report from Study
  Country: NL (occurrence: NL)
  Receive Date: 20131226
  Receipt Date: 20131226
  Transmission Date: 20140711
  Serious: Yes (Hospitalization)
  Sender: FDA-Public Use
  Company Number: NL-ROCHE-1324427

PATIENT
  Age: 55 Year
  Sex: Female
  Weight: 61 kg

DRUGS (3)
  1. TOCILIZUMAB [Suspect]
     Indication: RHEUMATOID ARTHRITIS
     Dosage: DATE OF MOST RECENT DOSE PRIOR TO SAE: 04/OCT/2013
     Route: 042
     Dates: start: 20110525
  2. ETORICOXIB [Concomitant]
     Dosage: MOST RECENT DOSE PRIOR TO SAE ON 19/OCT/2013
     Route: 048
     Dates: start: 20120529
  3. ESCITALOPRAM [Concomitant]
     Dosage: MOST RECENT DOSE PRIOR TO SAE 19/OCT/2013
     Route: 048
     Dates: start: 20050101

REACTIONS (1)
  - Lymphadenopathy [Recovered/Resolved]
